FAERS Safety Report 19145905 (Version 1)
Quarter: 2021Q2

REPORT INFORMATION
  Report Type: Spontaneous
  Country: FR (occurrence: FR)
  Receive Date: 20210416
  Receipt Date: 20210416
  Transmission Date: 20210717
  Serious: Yes (Disabling)
  Sender: FDA-Public Use
  Company Number: FR-BAYER-2021-120802

PATIENT
  Age: 40 Year
  Sex: Female
  Weight: 52 kg

DRUGS (1)
  1. MIRENA [Suspect]
     Active Substance: LEVONORGESTREL
     Indication: CONTRACEPTION
     Dosage: 20 ?G PER DAY, CONTINUOUSLY
     Route: 015
     Dates: start: 20190301, end: 20200825

REACTIONS (14)
  - Gastric pH decreased [Recovered/Resolved]
  - Panic attack [Not Recovered/Not Resolved]
  - Hyperhidrosis [Recovered/Resolved]
  - Anxiety [Not Recovered/Not Resolved]
  - Hypertrichosis [Recovered/Resolved]
  - Breast pain [Recovered/Resolved]
  - Muscle tightness [Not Recovered/Not Resolved]
  - Diffuse alopecia [Recovered/Resolved]
  - Vertigo [Recovered/Resolved]
  - Malaise [Recovered/Resolved]
  - Hypoaesthesia [Recovered/Resolved]
  - Hypotension [Recovered/Resolved]
  - Fatigue [Recovered/Resolved]
  - Vaginal haemorrhage [Recovered/Resolved]

NARRATIVE: CASE EVENT DATE: 20200701
